FAERS Safety Report 8189939-1 (Version None)
Quarter: 2012Q1

REPORT INFORMATION
  Report Type: 
  Country: None (occurrence: None)
  Receive Date: 20120221
  Receipt Date: 20120109
  Transmission Date: 20120608
  Serious: No
  Sender: FDA-Public Use
  Company Number: 1000026850

PATIENT
  Age: 41 Year
  Sex: Female

DRUGS (12)
  1. ADDERALL (AMPHETAMINE, DEXTROAMPHETAMINE) (AMPHETAMINE, DEXTROAMPHETAM [Concomitant]
  2. XANAX [Concomitant]
  3. VIIBRYD [Suspect]
     Indication: DEPRESSION
     Dosage: SEE IMAGE
     Route: 048
     Dates: start: 20111222, end: 20111228
  4. VIIBRYD [Suspect]
     Indication: DEPRESSION
     Dosage: SEE IMAGE
     Route: 048
     Dates: start: 20111230, end: 20120106
  5. VIIBRYD [Suspect]
     Indication: DEPRESSION
     Dosage: SEE IMAGE
     Route: 048
     Dates: start: 20111215, end: 20111221
  6. VIIBRYD [Suspect]
     Indication: DEPRESSION
     Dosage: SEE IMAGE
     Route: 048
     Dates: start: 20120107
  7. VIIBRYD [Suspect]
     Indication: DEPRESSION
     Dosage: SEE IMAGE
     Route: 048
     Dates: start: 20111208, end: 20111214
  8. VIIBRYD [Suspect]
     Indication: DEPRESSION
     Dosage: SEE IMAGE
     Route: 048
     Dates: start: 20111229, end: 20111229
  9. TRUVADA (EMTRICITABINEM TENOFOVIR DISOPROXIL) (EMTRICITABINE, TENOFOVI [Concomitant]
  10. LEXIVA (FOSAMPRENAVIR CALCIUM) (FOSAMPRENAVIR CALCIUM) [Concomitant]
  11. NORVIR [Concomitant]
  12. AMITIZA (LUBIPROSTONE) (LUBIPROSTONE) [Concomitant]

REACTIONS (2)
  - FEELING ABNORMAL [None]
  - CRYING [None]
